FAERS Safety Report 7002382-3 (Version None)
Quarter: 2010Q3

REPORT INFORMATION
  Report Type: 
  Country: None (occurrence: None)
  Receive Date: 20100920
  Receipt Date: 20100209
  Transmission Date: 20110219
  Serious: No
  Sender: FDA-Public Use
  Company Number: US-ASTRAZENECA-2010SE02453

PATIENT
  Sex: Female
  Weight: 72.6 kg

DRUGS (8)
  1. SEROQUEL XR [Suspect]
     Indication: MANIA
     Route: 048
  2. SYMBALTA [Concomitant]
  3. PROVAGIL [Concomitant]
  4. LEVOTHYROXINE SODIUM [Concomitant]
  5. LITHIUM [Concomitant]
  6. ADIVAN [Concomitant]
  7. ABILIFY [Concomitant]
  8. RISPERIDONE [Concomitant]

REACTIONS (3)
  - DRY MOUTH [None]
  - IRRITABILITY [None]
  - PROTRUSION TONGUE [None]
